FAERS Safety Report 6787546-6 (Version None)
Quarter: 2010Q2

REPORT INFORMATION
  Report Type: 
  Country: None (occurrence: None)
  Receive Date: 20100623
  Receipt Date: 20100613
  Transmission Date: 20101027
  Serious: Yes (Other)
  Sender: FDA-Public Use
  Company Number: EG-ROCHE-708759

PATIENT
  Sex: Male
  Weight: 89 kg

DRUGS (3)
  1. PEGASYS [Suspect]
     Indication: HEPATITIS C
     Dosage: FREQUENCY: WEEKLY
     Route: 058
     Dates: start: 20090727
  2. RIBAVIRIN [Suspect]
     Indication: HEPATITIS C
     Dosage: FREQUENCY: DAILY.
     Route: 048
     Dates: start: 20090727
  3. EPOGEN [Concomitant]
     Dates: start: 20090928, end: 20100203

REACTIONS (3)
  - ERECTILE DYSFUNCTION [None]
  - PITUITARY TUMOUR BENIGN [None]
  - VIRAL LOAD INCREASED [None]
